FAERS Safety Report 4433672-6 (Version None)
Quarter: 2004Q3

REPORT INFORMATION
  Report Type: 
  Country: None (occurrence: None)
  Receive Date: 20040826
  Receipt Date: 20040609
  Transmission Date: 20050211
  Serious: No
  Sender: FDA-Public Use
  Company Number: US-GLAXOSMITHKLINE-A0513971A

PATIENT
  Age: 61 Year
  Sex: Male

DRUGS (8)
  1. AVODART [Suspect]
     Indication: BENIGN PROSTATIC HYPERPLASIA
     Dosage: .5MG PER DAY
     Route: 048
     Dates: start: 20031229
  2. LUMIGAN [Concomitant]
  3. COSOPT [Concomitant]
  4. SYNTHROID [Concomitant]
  5. LEVAQUIN [Concomitant]
  6. FOLGARD [Concomitant]
  7. VITAMIN E [Concomitant]
  8. STOOL SOFTENER [Concomitant]

REACTIONS (1)
  - INTRAOCULAR PRESSURE INCREASED [None]
